FAERS Safety Report 6204164-9 (Version None)
Quarter: 2009Q2

REPORT INFORMATION
  Report Type: 
  Country: None (occurrence: None)
  Receive Date: 20090527
  Receipt Date: 20090521
  Transmission Date: 20091009
  Serious: Yes (Other)
  Sender: FDA-Public Use
  Company Number: JP-MERCK-0904USA01231

PATIENT
  Age: 16 Year
  Sex: Male

DRUGS (6)
  1. SINGULAIR [Suspect]
     Indication: ASTHMA
     Route: 048
     Dates: start: 20081127, end: 20090123
  2. SINGULAIR [Suspect]
     Route: 048
     Dates: start: 20081106, end: 20081120
  3. THEOLONG [Concomitant]
     Route: 048
     Dates: start: 20081106, end: 20090123
  4. ADVAIR DISKUS 100/50 [Concomitant]
     Dates: start: 20081031, end: 20081113
  5. ADVAIR DISKUS 100/50 [Concomitant]
     Dates: start: 20081127, end: 20081226
  6. ADVAIR DISKUS 100/50 [Concomitant]
     Dates: start: 20090113

REACTIONS (1)
  - ALTERED STATE OF CONSCIOUSNESS [None]
